FAERS Safety Report 8530258-9 (Version None)
Quarter: 2012Q3

REPORT INFORMATION
  Report Type: 
  Country: None (occurrence: None)
  Receive Date: 20120723
  Receipt Date: 20120712
  Transmission Date: 20120928
  Serious: Yes (Hospitalization, Other)
  Sender: FDA-Public Use
  Company Number: CA-JNJFOC-20120612029

PATIENT
  Sex: Female
  Weight: 57 kg

DRUGS (3)
  1. REMICADE [Suspect]
     Dosage: 12TH DOSE
     Route: 042
     Dates: start: 20120709
  2. REMICADE [Suspect]
     Indication: RHEUMATOID ARTHRITIS
     Dosage: INFUSION 12
     Route: 042
     Dates: start: 20120611
  3. ACETAMINOPHEN [Concomitant]
     Indication: PREMEDICATION
     Dosage: 15 MINUTES PRIOR TO INFUSION
     Route: 048

REACTIONS (2)
  - KNEE ARTHROPLASTY [None]
  - INFECTION [None]
